FAERS Safety Report 8376291-1 (Version None)
Quarter: 2012Q2

REPORT INFORMATION
  Report Type: 
  Country: None (occurrence: None)
  Receive Date: 20120522
  Receipt Date: 20120514
  Transmission Date: 20120825
  Serious: Yes (Other)
  Sender: FDA-Public Use
  Company Number: US-SANOFI-AVENTIS-2012SA035384

PATIENT

DRUGS (1)
  1. PLAVIX [Suspect]
     Dates: end: 20110101

REACTIONS (2)
  - HEAT STROKE [None]
  - MYOCARDIAL INFARCTION [None]
